FAERS Safety Report 8452076-2 (Version None)
Quarter: 2012Q2

REPORT INFORMATION
  Report Type: 
  Country: None (occurrence: None)
  Receive Date: 20120620
  Receipt Date: 20120412
  Transmission Date: 20120825
  Serious: No
  Sender: FDA-Public Use
  Company Number: US-VERTEX PHARMACEUTICALS INC.-AE-2012-004603

PATIENT
  Sex: Female
  Weight: 90.8 kg

DRUGS (5)
  1. COPEGUS [Concomitant]
  2. COPEGUS [Concomitant]
     Indication: HEPATITIS C
     Dates: start: 20120103, end: 20120202
  3. COPEGUS [Concomitant]
     Dates: start: 20120203, end: 20120303
  4. INCIVEK [Suspect]
     Indication: HEPATITIS C
     Route: 048
     Dates: start: 20120103, end: 20120329
  5. PEGASYS [Concomitant]
     Indication: HEPATITIS C
     Route: 058
     Dates: start: 20120103

REACTIONS (4)
  - ANAEMIA [None]
  - SLEEP DISORDER [None]
  - DIARRHOEA [None]
  - VOMITING [None]
